FAERS Safety Report 10755194 (Version 1)
Quarter: 2015Q1

REPORT INFORMATION
  Report Type: Spontaneous
  Country: JP (occurrence: JP)
  Receive Date: 20150202
  Receipt Date: 20150202
  Transmission Date: 20150721
  Serious: Yes (Hospitalization)
  Sender: FDA-Public Use
  Company Number: JP-ASTRAZENECA-2015SE10264

PATIENT
  Age: 76 Year
  Sex: Male

DRUGS (13)
  1. INLYTA [Concomitant]
     Active Substance: AXITINIB
     Indication: RENAL CANCER
     Route: 048
     Dates: start: 20140813
  2. MEROPEN [Suspect]
     Active Substance: MEROPENEM
     Indication: PNEUMONIA KLEBSIELLA
     Route: 042
     Dates: start: 20141006, end: 20141006
  3. PISULCIN [Concomitant]
     Active Substance: AMPICILLIN SODIUM\SULBACTAM SODIUM
     Dates: start: 20141006
  4. SOLACET D [Concomitant]
     Dates: start: 20141005
  5. SOLDEM 3A [Concomitant]
     Active Substance: CARBOHYDRATES\POTASSIUM CHLORIDE\SODIUM CHLORIDE\SODIUM LACTATE
     Dates: start: 20141005
  6. PREDONINE [Concomitant]
     Active Substance: PREDNISOLONE\PREDNISOLONE ACETATE\PREDNISOLONE SODIUM SUCCINATE
     Indication: ANTIALLERGIC THERAPY
     Route: 042
     Dates: start: 20141006, end: 20141014
  7. GLOVENIN [Concomitant]
     Dates: start: 20141004, end: 20141006
  8. MEROPEN [Suspect]
     Active Substance: MEROPENEM
     Indication: PNEUMONIA KLEBSIELLA
     Route: 042
     Dates: start: 20141002, end: 20141002
  9. INLYTA [Concomitant]
     Active Substance: AXITINIB
     Indication: METASTASES TO LUNG
     Route: 048
     Dates: start: 20140813
  10. PHYSIOLOGICAL SALINE [Concomitant]
     Dates: start: 20141003
  11. KENKETSU GLOVENIN-I-NICHIYAKU [Concomitant]
     Route: 042
     Dates: start: 20141004
  12. DECADRON [Concomitant]
     Active Substance: DEXAMETHASONE
     Indication: MALAISE
     Route: 048
     Dates: start: 20140815, end: 20141007
  13. MEROPEN [Suspect]
     Active Substance: MEROPENEM
     Indication: PNEUMONIA KLEBSIELLA
     Dosage: 1 G +PHYSIOLOGICAL SALINE 100ML IN THE MORNING AND EVENING (12 HOURS INTERVAL)
     Route: 042
     Dates: start: 20141003, end: 20141005

REACTIONS (1)
  - Interstitial lung disease [Recovering/Resolving]

NARRATIVE: CASE EVENT DATE: 20141003
